FAERS Safety Report 7390452-X (Version None)
Quarter: 2011Q2

REPORT INFORMATION
  Report Type: 
  Country: None (occurrence: None)
  Receive Date: 20110401
  Receipt Date: 20110329
  Transmission Date: 20111010
  Serious: Yes (Hospitalization)
  Sender: FDA-Public Use
  Company Number: FR-MERCK-1009FRA00049

PATIENT
  Age: 72 Year
  Sex: Male
  Weight: 67 kg

DRUGS (13)
  1. SOTALOL HYDROCHLORIDE [Concomitant]
     Indication: PAROXYSMAL ARRHYTHMIA
     Route: 048
     Dates: start: 20020730
  2. CLONAZEPAM [Concomitant]
     Indication: RESTLESS LEGS SYNDROME
     Route: 048
     Dates: start: 19990208
  3. TRAMADOL HYDROCHLORIDE [Concomitant]
     Indication: GAIT DISTURBANCE
     Route: 048
     Dates: start: 20100614
  4. AMLODIPINE BESYLATE [Concomitant]
     Indication: HYPERTENSION
     Route: 048
     Dates: start: 20070511
  5. CHOLECALCIFEROL [Concomitant]
     Indication: VITAMIN D DEFICIENCY
     Route: 048
     Dates: start: 20100713
  6. ESCITALOPRAM OXALATE [Concomitant]
     Indication: DEPRESSION
     Route: 048
     Dates: start: 20091217
  7. EMTRICITABINE AND TENOFOVIR DISOPROXIL FUMARATE [Concomitant]
     Route: 048
     Dates: start: 20100713
  8. ISENTRESS [Suspect]
     Indication: HIV INFECTION
     Route: 048
     Dates: start: 20100713
  9. CLOPIDOGREL BISULFATE [Concomitant]
     Indication: ANTITHROMBIN III
     Route: 048
     Dates: start: 20090629
  10. GLYCERIN AND MINERAL OIL AND PETROLATUM, WHITE [Concomitant]
     Indication: DRY SKIN
     Route: 061
     Dates: start: 20091217
  11. OXAZEPAM [Concomitant]
     Indication: INSOMNIA
     Route: 065
     Dates: start: 20091127
  12. ROSUVASTATIN CALCIUM [Concomitant]
     Indication: HYPERCHOLESTEROLAEMIA
     Route: 048
     Dates: start: 20090622, end: 20100924
  13. MARAVIROC [Concomitant]
     Route: 048
     Dates: start: 20100713

REACTIONS (1)
  - CEREBROVASCULAR ACCIDENT [None]
